FAERS Safety Report 22648339 (Version 1)
Quarter: 2023Q2

REPORT INFORMATION
  Report Type: Spontaneous
  Country: CN (occurrence: CN)
  Receive Date: 20230628
  Receipt Date: 20230628
  Transmission Date: 20230721
  Serious: Yes (Other)
  Sender: FDA-Public Use
  Company Number: CN-QILU PHARMACEUTICAL (HAINAN) CO.  LTD.-QLH-000096-2023

PATIENT
  Age: 47 Year
  Sex: Male

DRUGS (8)
  1. OXALIPLATIN [Suspect]
     Active Substance: OXALIPLATIN
     Indication: Rectal cancer stage IV
     Dosage: CUMULATIVE DOSE: 716 MG/M2 (1440 MG), 8 CYCLES, AS A PART OF XELOX REGIMEN
     Route: 065
     Dates: start: 202011, end: 202103
  2. OXALIPLATIN [Suspect]
     Active Substance: OXALIPLATIN
     Dosage: 9TH CYCLE, AS A PART OF XELOX REGIMEN
     Route: 065
     Dates: start: 2021
  3. CAPECITABINE [Concomitant]
     Active Substance: CAPECITABINE
     Dosage: 8 CYCLES, AS A PART OF XELOX REGIMEN
     Route: 065
     Dates: start: 202011, end: 202103
  4. CAPECITABINE [Concomitant]
     Active Substance: CAPECITABINE
     Route: 065
  5. NIVOLUMAB [Concomitant]
     Active Substance: NIVOLUMAB
     Dosage: CUMULATIVE DOSE: 955 MG/M2 (1920 MG), 8 CYCLES
     Route: 065
     Dates: start: 202011, end: 202103
  6. NIVOLUMAB [Concomitant]
     Active Substance: NIVOLUMAB
     Route: 065
  7. CETUXIMAB [Concomitant]
     Active Substance: CETUXIMAB
     Dosage: 8 CYCLES
     Route: 065
     Dates: start: 202011, end: 202103
  8. CETUXIMAB [Concomitant]
     Active Substance: CETUXIMAB
     Route: 065

REACTIONS (1)
  - Haemolysis [Recovered/Resolved]
